FAERS Safety Report 13255399 (Version 1)
Quarter: 2017Q1

REPORT INFORMATION
  Report Type: Spontaneous
  Country: US (occurrence: US)
  Receive Date: 20170221
  Receipt Date: 20170221
  Transmission Date: 20170428
  Serious: No
  Sender: FDA-Public Use
  Company Number: US-TEVA-653674USA

PATIENT
  Age: 64 Year
  Sex: Female
  Weight: 78.09 kg

DRUGS (1)
  1. OXYMORPHONE HYDROCHLORIDE. [Suspect]
     Active Substance: OXYMORPHONE HYDROCHLORIDE
     Indication: PAIN
     Route: 065
     Dates: start: 20150323

REACTIONS (11)
  - Defaecation urgency [Recovering/Resolving]
  - Dysphagia [Recovering/Resolving]
  - Fatigue [Recovering/Resolving]
  - Micturition urgency [Recovering/Resolving]
  - Pruritus [Recovering/Resolving]
  - Gastrointestinal disorder [Recovering/Resolving]
  - Skin discolouration [Recovering/Resolving]
  - Oropharyngeal pain [Recovering/Resolving]
  - Sleep disorder [Recovering/Resolving]
  - Dermatitis [Recovering/Resolving]
  - Oral discomfort [Recovering/Resolving]

NARRATIVE: CASE EVENT DATE: 20150324
